FAERS Safety Report 6427505-6 (Version None)
Quarter: 2009Q4

REPORT INFORMATION
  Report Type: 
  Country: None (occurrence: None)
  Receive Date: 20091104
  Receipt Date: 20091026
  Transmission Date: 20100525
  Serious: Yes (Hospitalization)
  Sender: FDA-Public Use
  Company Number: PHHY2009MX46641

PATIENT
  Sex: Female

DRUGS (2)
  1. STALEVO 100 [Suspect]
     Indication: PARKINSON'S DISEASE
     Dosage: 1 DF, PER DAY
     Route: 048
  2. STALEVO 100 [Suspect]
     Dosage: 2 DF, UNK
     Route: 048
     Dates: end: 20091020

REACTIONS (1)
  - EMBOLISM [None]
